FAERS Safety Report 6248953-3 (Version None)
Quarter: 2009Q2

REPORT INFORMATION
  Report Type: 
  Country: None (occurrence: None)
  Receive Date: 20090629
  Receipt Date: 20090615
  Transmission Date: 20091009
  Serious: Yes (Hospitalization)
  Sender: FDA-Public Use
  Company Number: FR-AVENTIS-200912218FR

PATIENT
  Age: 52 Year
  Sex: Male

DRUGS (4)
  1. PYOSTACINE [Suspect]
     Indication: ERYSIPELAS
     Route: 048
     Dates: start: 20090401, end: 20090411
  2. TORENTAL [Suspect]
     Route: 048
     Dates: start: 20090226
  3. TRACLEER [Suspect]
     Route: 048
     Dates: start: 20090316, end: 20090101
  4. TRACLEER [Suspect]
     Route: 048
     Dates: start: 20090101

REACTIONS (1)
  - LEUKOCYTOCLASTIC VASCULITIS [None]
